FAERS Safety Report 10630202 (Version 1)
Quarter: 2014Q4

REPORT INFORMATION
  Report Type: Spontaneous
  Country: US (occurrence: US)
  Receive Date: 20141205
  Receipt Date: 20141205
  Transmission Date: 20150529
  Serious: No
  Sender: FDA-Public Use
  Company Number: US-BRISTOL-MYERS SQUIBB COMPANY-21042098

PATIENT
  Sex: Male
  Weight: 154.19 kg

DRUGS (5)
  1. BYDUREON [Suspect]
     Active Substance: EXENATIDE
  2. JANUVIA [Concomitant]
     Active Substance: SITAGLIPTIN PHOSPHATE
  3. ACTOS [Concomitant]
     Active Substance: PIOGLITAZONE HYDROCHLORIDE
  4. GLIPIRIDE [Concomitant]
     Active Substance: GLIMEPIRIDE
  5. GLIPIZIDE. [Concomitant]
     Active Substance: GLIPIZIDE

REACTIONS (2)
  - Weight decreased [Unknown]
  - Blood glucose fluctuation [Unknown]
